FAERS Safety Report 25905782 (Version 2)
Quarter: 2025Q4

REPORT INFORMATION
  Report Type: Spontaneous
  Country: US (occurrence: US)
  Receive Date: 20251010
  Receipt Date: 20251112
  Transmission Date: 20260118
  Serious: No
  Sender: SANOFI AVENTIS
  Company Number: US-SA-2025SA300498

PATIENT
  Age: 15 Year
  Sex: Female

DRUGS (5)
  1. DUPIXENT [Suspect]
     Active Substance: DUPILUMAB
     Indication: Skin fissures
     Dosage: 400 MG, 1X
     Route: 058
     Dates: start: 202507, end: 202507
  2. DUPIXENT [Suspect]
     Active Substance: DUPILUMAB
     Indication: Skin weeping
     Dosage: 200 MG, QOW
     Route: 058
     Dates: start: 2025
  3. DUPIXENT [Suspect]
     Active Substance: DUPILUMAB
     Indication: Psoriasis
  4. DUPIXENT [Suspect]
     Active Substance: DUPILUMAB
     Indication: Acne
  5. DUPIXENT [Suspect]
     Active Substance: DUPILUMAB
     Indication: Dermatitis atopic

REACTIONS (9)
  - Acne [Recovered/Resolved]
  - Stress [Recovered/Resolved]
  - Condition aggravated [Recovered/Resolved]
  - Skin tightness [Recovered/Resolved]
  - Erythema [Recovered/Resolved]
  - Sensitive skin [Recovered/Resolved]
  - Dermatitis atopic [Unknown]
  - Therapeutic response shortened [Unknown]
  - Product use in unapproved indication [Unknown]

NARRATIVE: CASE EVENT DATE: 20250101
